FAERS Safety Report 9671291 (Version 1)
Quarter: 2013Q4

REPORT INFORMATION
  Report Type: Report from Study
  Country: CA (occurrence: CA)
  Receive Date: 20131106
  Receipt Date: 20131106
  Transmission Date: 20140711
  Serious: Yes (Life-Threatening, Hospitalization)
  Sender: FDA-Public Use
  Company Number: CA-B.I. PHARMACEUTICALS,INC./RIDGEFIELD-2013-BI-35117GD

PATIENT
  Age: 81 Year
  Sex: Female

DRUGS (1)
  1. PRADAXA [Suspect]
     Dosage: 110 MG
     Route: 048

REACTIONS (8)
  - Basal ganglia haemorrhage [Not Recovered/Not Resolved]
  - Brain oedema [Unknown]
  - Microangiopathy [Unknown]
  - Disorientation [Unknown]
  - Balance disorder [Recovered/Resolved]
  - Hemiparesis [Unknown]
  - Dysarthria [Recovered/Resolved]
  - Fall [Unknown]
